FAERS Safety Report 7648495-4 (Version None)
Quarter: 2011Q3

REPORT INFORMATION
  Report Type: 
  Country: None (occurrence: None)
  Receive Date: 20110801
  Receipt Date: 20110721
  Transmission Date: 20111222
  Serious: Yes (Life-Threatening, Hospitalization, Other)
  Sender: FDA-Public Use
  Company Number: JP-BAXTER-2011BH021493

PATIENT
  Age: 23 Year
  Sex: Female

DRUGS (2)
  1. CYCLOPHOSPHAMIDE [Suspect]
     Indication: BONE MARROW CONDITIONING REGIMEN
     Route: 042
     Dates: start: 20110521, end: 20110522
  2. CYCLOPHOSPHAMIDE [Suspect]
     Indication: ACUTE MYELOID LEUKAEMIA
     Route: 042
     Dates: start: 20110521, end: 20110522

REACTIONS (4)
  - CARDIOMYOPATHY [None]
  - VENOOCCLUSIVE LIVER DISEASE [None]
  - CYSTITIS HAEMORRHAGIC [None]
  - BLOOD BILIRUBIN INCREASED [None]
